FAERS Safety Report 5309142-X (Version None)
Quarter: 2007Q2

REPORT INFORMATION
  Report Type: 
  Country: None (occurrence: None)
  Receive Date: 20070423
  Receipt Date: 20070412
  Transmission Date: 20071010
  Serious: Yes (Hospitalization, Other)
  Sender: FDA-Public Use
  Company Number: 2007BI007923

PATIENT
  Age: 28 Year
  Sex: Female
  Weight: 129.2752 kg

DRUGS (1)
  1. AVONEX [Suspect]
     Indication: MULTIPLE SCLEROSIS
     Dosage: 30 UG; QW; IM
     Route: 030
     Dates: start: 20061101

REACTIONS (2)
  - PAPILLARY THYROID CANCER [None]
  - THYROGLOSSAL CYST [None]
